FAERS Safety Report 5125837-5 (Version None)
Quarter: 2006Q3

REPORT INFORMATION
  Report Type: 
  Country: None (occurrence: None)
  Receive Date: 20060818
  Receipt Date: 20060427
  Transmission Date: 20061208
  Serious: No
  Sender: FDA-Public Use
  Company Number: SUS1-2006-00458

PATIENT
  Age: 28 Year
  Sex: Male
  Weight: 68.5 kg

DRUGS (13)
  1. FOSRENOL [Suspect]
     Indication: HYPERPHOSPHATAEMIA
     Dosage: 1000 MG, 3X/DAY:TID
     Dates: start: 20050901
  2. LONITEN [Concomitant]
  3. SONATA [Concomitant]
  4. ATACAND /01349502/ (CANDESARTAN CILEXETIL) [Concomitant]
  5. CARDURA /00639302/ (DOXAZOSIN MESILATE) [Concomitant]
  6. CATAPRES /00171101/ (CLONIDINE) [Concomitant]
  7. DARVOCET (DEXTROPROPOXYPHENE NAPSILATE) [Concomitant]
  8. EPOGEN [Concomitant]
  9. FERROUS SULFATE TAB [Concomitant]
  10. KLONOPIN [Concomitant]
  11. NEPHROCAPS (FOLIC ACID) [Concomitant]
  12. NORVASC /00972402/ (AMLODIPINE BESILATE) [Concomitant]
  13. TRANDATE [Concomitant]

REACTIONS (1)
  - CHEST X-RAY ABNORMAL [None]
